FAERS Safety Report 5469978-1 (Version None)
Quarter: 2007Q3

REPORT INFORMATION
  Report Type: 
  Country: None (occurrence: None)
  Receive Date: 20070927
  Receipt Date: 20070919
  Transmission Date: 20080115
  Serious: Yes (Hospitalization, Other)
  Sender: FDA-Public Use
  Company Number: US-PFIZER INC-2006119414

PATIENT
  Sex: Female
  Weight: 98 kg

DRUGS (5)
  1. CELEBREX [Suspect]
     Indication: OSTEOARTHRITIS
  2. BEXTRA [Suspect]
     Indication: OSTEOARTHRITIS
  3. VIOXX [Suspect]
     Indication: OSTEOARTHRITIS
     Dates: start: 20000110, end: 20040106
  4. ULTRACET [Concomitant]
     Dates: start: 20031103, end: 20050220
  5. TENORMIN [Concomitant]
     Dates: start: 19990303

REACTIONS (2)
  - CEREBROVASCULAR ACCIDENT [None]
  - MYOCARDIAL INFARCTION [None]
